FAERS Safety Report 14311961 (Version 1)
Quarter: 2017Q4

REPORT INFORMATION
  Report Type: Spontaneous
  Country: US (occurrence: US)
  Receive Date: 20171221
  Receipt Date: 20171221
  Transmission Date: 20180321
  Serious: No
  Sender: FDA-Public Use
  Company Number: US-TEVA-717055ACC

PATIENT
  Sex: Female
  Weight: 51.3 kg

DRUGS (1)
  1. DORZOSLN-A (DORZOLAMIDE) [Suspect]
     Active Substance: DORZOLAMIDE
     Indication: GLAUCOMA
     Dosage: FORM STRENGTH: SOLUTION

REACTIONS (3)
  - Eyelid disorder [Unknown]
  - Pain [Unknown]
  - Dry eye [Unknown]
